FAERS Safety Report 18469044 (Version 1)
Quarter: 2020Q4

REPORT INFORMATION
  Report Type: Spontaneous
  Country: US (occurrence: US)
  Receive Date: 20201105
  Receipt Date: 20201105
  Transmission Date: 20210114
  Serious: No
  Sender: FDA-Public Use
  Company Number: None

PATIENT
  Age: 79 Year
  Sex: Female
  Weight: 95.5 kg

DRUGS (13)
  1. VEKLURY [Suspect]
     Active Substance: REMDESIVIR
     Indication: COVID-19
     Route: 040
     Dates: start: 20201031, end: 20201103
  2. AMLODIPINE 10 MG [Concomitant]
     Active Substance: AMLODIPINE BESYLATE
     Dates: start: 20201028
  3. MULTIPLE VITAMIN [Concomitant]
     Active Substance: VITAMINS
     Dates: start: 20201029
  4. ENOXAPARIN 95.5 MG [Concomitant]
     Dates: start: 20201031
  5. PANTOPRAZOLE 40 MG [Concomitant]
     Active Substance: PANTOPRAZOLE SODIUM
     Dates: start: 20201029
  6. ZINC 220 MG [Concomitant]
     Dates: start: 20201028
  7. EZETIMIBE 10 MG [Concomitant]
     Active Substance: EZETIMIBE
     Dates: start: 20201028
  8. SENNA S 50MG-8.6 MG [Concomitant]
     Dates: start: 20201031
  9. CHOLECALCIFEROL 5,000 UNITS [Concomitant]
     Dates: start: 20201028
  10. DEXAMETHASONE 10 MG [Concomitant]
     Dates: start: 20201031
  11. INSULIN DETEMIR [Concomitant]
     Active Substance: INSULIN DETEMIR
     Dates: start: 20201031
  12. ASCORBIC ACID 500 MG [Concomitant]
     Dates: start: 20201028
  13. HCTZ 25 MG [Concomitant]
     Dates: start: 20201028

REACTIONS (2)
  - Therapy cessation [None]
  - Alanine aminotransferase increased [None]

NARRATIVE: CASE EVENT DATE: 20201103
